FAERS Safety Report 19037229 (Version 1)
Quarter: 2021Q1

REPORT INFORMATION
  Report Type: Spontaneous
  Country: US (occurrence: US)
  Receive Date: 20210322
  Receipt Date: 20210322
  Transmission Date: 20210420
  Serious: Yes (Hospitalization, Other)
  Sender: FDA-Public Use
  Company Number: US-CATALENT PHARMA SOLUTIONS-CAT-000054-2021

PATIENT
  Age: 60 Year
  Sex: Female

DRUGS (8)
  1. AMLODIPINE [Concomitant]
     Active Substance: AMLODIPINE BESYLATE
     Indication: PRODUCT USED FOR UNKNOWN INDICATION
     Dosage: 10 MILLIGRAM
     Route: 065
  2. OLANZAPINE. [Concomitant]
     Active Substance: OLANZAPINE
     Indication: SCHIZOAFFECTIVE DISORDER
     Dosage: UNK
     Route: 065
  3. CLOZAPINE. [Suspect]
     Active Substance: CLOZAPINE
     Indication: SCHIZOAFFECTIVE DISORDER
     Dosage: 25 MILLIGRAM, QD
     Route: 048
  4. DOCUSATE [Concomitant]
     Active Substance: DOCUSATE
     Indication: PRODUCT USED FOR UNKNOWN INDICATION
     Dosage: 200 MILLIGRAM
     Route: 065
  5. VALPROIC ACID. [Suspect]
     Active Substance: VALPROIC ACID
     Indication: SCHIZOAFFECTIVE DISORDER
     Dosage: 500 MILLIGRAM, TID
     Route: 065
  6. CLOZAPINE. [Suspect]
     Active Substance: CLOZAPINE
     Dosage: 150 MILLIGRAM, BID
     Route: 048
  7. POLYETHYLENE GLYCOL [Concomitant]
     Active Substance: POLYETHYLENE GLYCOLS
     Indication: PRODUCT USED FOR UNKNOWN INDICATION
     Dosage: 17 GRAM
     Route: 065
  8. RISPERIDONE. [Concomitant]
     Active Substance: RISPERIDONE
     Indication: SCHIZOAFFECTIVE DISORDER
     Dosage: UNK
     Route: 065

REACTIONS (3)
  - Agranulocytosis [Recovered/Resolved]
  - Potentiating drug interaction [Recovered/Resolved]
  - Drug level below therapeutic [Unknown]
